FAERS Safety Report 4472777-0 (Version None)
Quarter: 2004Q4

REPORT INFORMATION
  Report Type: 
  Country: None (occurrence: None)
  Receive Date: 20041013
  Receipt Date: 20041008
  Transmission Date: 20050328
  Serious: Yes (Life-Threatening, Hospitalization)
  Sender: FDA-Public Use
  Company Number: PHBS2004ES13421

PATIENT
  Age: 72 Year
  Sex: Male

DRUGS (5)
  1. DICLOFENAC SODIUM [Suspect]
     Indication: ARTHROPATHY
     Dosage: 100 MG/DAY
     Route: 048
     Dates: start: 20000101, end: 20040804
  2. ACENOCOUMAROL [Suspect]
     Route: 048
     Dates: start: 20010101, end: 20040804
  3. DACORTIN [Suspect]
     Indication: ARTHROPATHY
     Dosage: 30 MG/DAY
     Route: 048
     Dates: start: 20040722, end: 20040804
  4. OMEPRAZOLE [Concomitant]
  5. DIGOXIN [Concomitant]

REACTIONS (5)
  - DRUG INTERACTION [None]
  - GASTROINTESTINAL HAEMORRHAGE [None]
  - HAEMATOCRIT [None]
  - HAEMOGLOBIN DECREASED [None]
  - ULCER [None]
